FAERS Safety Report 15268610 (Version 1)
Quarter: 2018Q3

REPORT INFORMATION
  Report Type: Report from Study
  Country: CA (occurrence: CA)
  Receive Date: 20180812
  Receipt Date: 20180812
  Transmission Date: 20181010
  Serious: Yes (Death, Life-Threatening, Hospitalization)
  Sender: FDA-Public Use
  Company Number: PHHY2015CA030973

PATIENT
  Age: 68 Year
  Sex: Female

DRUGS (1)
  1. SANDOSTATIN LAR DEPOT [Suspect]
     Active Substance: OCTREOTIDE ACETATE
     Indication: CARCINOID TUMOUR
     Dosage: 20 MG, QMO
     Route: 030
     Dates: start: 20040319

REACTIONS (6)
  - Underdose [Unknown]
  - Product reconstitution quality issue [Unknown]
  - Product use issue [Unknown]
  - Feeling abnormal [Unknown]
  - Death [Fatal]
  - Syringe issue [Unknown]

NARRATIVE: CASE EVENT DATE: 2015
